FAERS Safety Report 20488199 (Version 1)
Quarter: 2022Q1

REPORT INFORMATION
  Report Type: Spontaneous
  Country: FR (occurrence: FR)
  Receive Date: 20220218
  Receipt Date: 20220218
  Transmission Date: 20220423
  Serious: Yes (Hospitalization)
  Sender: FDA-Public Use
  Company Number: None

PATIENT
  Age: 46 Year
  Sex: Female

DRUGS (8)
  1. BUPRENORPHINE [Suspect]
     Active Substance: BUPRENORPHINE
     Dosage: NON RENSEIGN?E
     Route: 065
     Dates: start: 202102
  2. UNSPECIFIED INGREDIENT [Suspect]
     Active Substance: UNSPECIFIED INGREDIENT
     Dosage: NON RENSEIGN?E
     Route: 065
     Dates: end: 20210219
  3. SUBOXONE [Suspect]
     Active Substance: BUPRENORPHINE HYDROCHLORIDE\NALOXONE HYDROCHLORIDE
     Dosage: JUSQU^? 56 MG/J
     Route: 048
     Dates: start: 2018, end: 20210213
  4. TOBACCO LEAF [Suspect]
     Active Substance: TOBACCO LEAF
     Dosage: 12 CIG/JOUR
     Route: 055
     Dates: start: 1998
  5. CANNABIS SATIVA SUBSP. INDICA TOP [Suspect]
     Active Substance: CANNABIS SATIVA SUBSP. INDICA TOP
     Dosage: 4 ? 5 JOINTS/J
     Route: 055
     Dates: start: 1998
  6. ALCOHOL [Suspect]
     Active Substance: ALCOHOL
     Dosage: NON RENSEIGN?E
     Route: 048
  7. BROMAZEPAM [Suspect]
     Active Substance: BROMAZEPAM
     Dosage: JUSQU^? 48 MG PAR JOUR
     Route: 048
     Dates: start: 2005, end: 20210213
  8. CODEINE [Suspect]
     Active Substance: CODEINE
     Dosage: JUSQU^? 48 CP PAR JOUR
     Route: 048
     Dates: start: 2000, end: 2018

REACTIONS (7)
  - Tachycardia [Recovered/Resolved]
  - Incoherent [Recovered/Resolved]
  - Hallucination [Recovered/Resolved]
  - Sleep disorder [Recovering/Resolving]
  - Drug abuse [Not Recovered/Not Resolved]
  - Delusional disorder, persecutory type [Recovered/Resolved]
  - Logorrhoea [Recovered/Resolved]

NARRATIVE: CASE EVENT DATE: 19980101
